FAERS Safety Report 9387576 (Version 1)
Quarter: 2013Q3

REPORT INFORMATION
  Report Type: Spontaneous
  Country: US (occurrence: US)
  Receive Date: 20130708
  Receipt Date: 20130708
  Transmission Date: 20140515
  Serious: Yes (Hospitalization)
  Sender: FDA-Public Use
  Company Number: US-ROCHE-1219757

PATIENT
  Sex: Female
  Weight: 49.94 kg

DRUGS (3)
  1. PEGASYS [Suspect]
     Indication: CHRONIC HEPATITIS C
     Route: 058
     Dates: start: 20130408
  2. RIBASPHERE [Suspect]
     Indication: CHRONIC HEPATITIS C
     Dosage: DIVIDED DOSES OF 600/400
     Route: 048
     Dates: start: 20130408
  3. INCIVEK [Suspect]
     Indication: CHRONIC HEPATITIS C
     Route: 065
     Dates: start: 20130408

REACTIONS (17)
  - Myocardial infarction [Unknown]
  - Cardiac failure congestive [Unknown]
  - Fall [Unknown]
  - Swelling [Unknown]
  - Skin ulcer [Unknown]
  - Pharyngeal disorder [Unknown]
  - Mass [Unknown]
  - Breast tenderness [Unknown]
  - Retracted nipple [Unknown]
  - Oedema mouth [Unknown]
  - Pain [Unknown]
  - Weight increased [Unknown]
  - Breast mass [Unknown]
  - Infectious mononucleosis [Unknown]
  - Breast swelling [Unknown]
  - Contusion [Unknown]
  - Oedema [Unknown]
